FAERS Safety Report 6223039-2 (Version None)
Quarter: 2009Q2

REPORT INFORMATION
  Report Type: 
  Country: None (occurrence: None)
  Receive Date: 20090611
  Receipt Date: 20090602
  Transmission Date: 20091009
  Serious: Yes (Hospitalization)
  Sender: FDA-Public Use
  Company Number: ZA-B.I. PHARMACEUTICALS,INC./RIDGEFIELD-2009-BP-06229BP

PATIENT
  Sex: Female
  Weight: 5.8 kg

DRUGS (4)
  1. VIRAMUNE [Suspect]
     Indication: HIV INFECTION
     Dosage: 60MG
     Route: 048
     Dates: start: 20090507, end: 20090512
  2. AZT [Suspect]
     Indication: HIV INFECTION
     Dosage: 120MG
     Route: 048
     Dates: start: 20090507, end: 20090512
  3. 3TC [Suspect]
     Indication: HIV INFECTION
     Dosage: 40MG
     Route: 048
     Dates: start: 20090507, end: 20090512
  4. BACTRIM [Concomitant]

REACTIONS (2)
  - DERMATITIS [None]
  - RASH [None]
